FAERS Safety Report 10209586 (Version 3)
Quarter: 2014Q3

REPORT INFORMATION
  Report Type: Not Available
  Country: US (occurrence: US)
  Receive Date: 20140602
  Receipt Date: 20140714
  Transmission Date: 20150326
  Serious: Yes (Other)
  Sender: FDA-Public Use
  Company Number: US-BEH-2014042193

PATIENT
  Sex: Female

DRUGS (2)
  1. HIZENTRA [Suspect]
     Active Substance: HUMAN IMMUNOGLOBULIN G
  2. GAMMAGARD [Suspect]
     Active Substance: HUMAN IMMUNOGLOBULIN G
     Route: 042

REACTIONS (1)
  - Adverse drug reaction [Recovered/Resolved]
